FAERS Safety Report 15935782 (Version 1)
Quarter: 2019Q1

REPORT INFORMATION
  Report Type: Spontaneous
  Country: US (occurrence: US)
  Receive Date: 20190208
  Receipt Date: 20190208
  Transmission Date: 20190417
  Serious: No
  Sender: FDA-Public Use
  Company Number: US-ELI_LILLY_AND_COMPANY-US201902001277

PATIENT
  Age: 54 Year
  Sex: Male

DRUGS (1)
  1. TRULICITY [Suspect]
     Active Substance: DULAGLUTIDE
     Indication: PRODUCT USED FOR UNKNOWN INDICATION
     Dosage: 1.5 MG, WEEKLY (1/W)
     Route: 065
     Dates: start: 20190118

REACTIONS (10)
  - Abdominal discomfort [Not Recovered/Not Resolved]
  - Diarrhoea [Recovered/Resolved]
  - Dysgeusia [Not Recovered/Not Resolved]
  - Nausea [Recovered/Resolved]
  - Abdominal distension [Not Recovered/Not Resolved]
  - Eructation [Not Recovered/Not Resolved]
  - Flatulence [Not Recovered/Not Resolved]
  - Decreased appetite [Not Recovered/Not Resolved]
  - Blood glucose increased [Recovered/Resolved]
  - Gastrointestinal sounds abnormal [Not Recovered/Not Resolved]

NARRATIVE: CASE EVENT DATE: 20190118
